FAERS Safety Report 8839893 (Version 1)
Quarter: 2012Q4

REPORT INFORMATION
  Report Type: 
  Country: DK (occurrence: FR)
  Receive Date: 20121015
  Receipt Date: 20121015
  Transmission Date: 20130627
  Serious: Yes (Hospitalization)
  Sender: FDA-Public Use
  Company Number: FR-FRI-1000039396

PATIENT
  Sex: Male

DRUGS (12)
  1. ESCITALOPRAM [Suspect]
     Indication: DEPRESSION
     Dosage: 20 mg
     Route: 048
  2. ISOPTINE [Suspect]
     Indication: HYPERTENSION
     Dosage: 120 mg
     Route: 048
     Dates: end: 20120627
  3. TEMERIT [Suspect]
     Indication: HYPERTENSION
     Dosage: 2.5 mg
     Route: 048
  4. TEMERIT [Suspect]
     Route: 048
  5. KARDEGIC [Suspect]
     Indication: THROMBOSIS PROPHYLAXIS
     Dosage: 160 mg
     Route: 048
  6. KARDEGIC [Suspect]
     Route: 048
  7. UNSPECIFIED INGREDIENT [Suspect]
     Indication: HYPERTENSION
     Dosage: 50 mg/20 mg daily
     Route: 048
  8. COZAAR [Suspect]
     Indication: HYPERTENSION
     Dosage: 100 mg
     Route: 048
  9. METFORMINE [Concomitant]
  10. SYMBICORT TURBUHALER [Concomitant]
  11. ALLOPURINOL [Concomitant]
  12. ATARAX [Concomitant]

REACTIONS (3)
  - Bradycardia [Recovered/Resolved]
  - Balance disorder [Recovered/Resolved]
  - Dizziness [Recovered/Resolved]
